FAERS Safety Report 6966521 (Version 2)
Quarter: 2013Q2

REPORT INFORMATION
  Report Type: Spontaneous
  Country: US (occurrence: None)
  Receive Date: 20090402
  Receipt Date: 20130129
  Transmission Date: 20140414
  Serious: Yes (Other)
  Sender: FDA-Public Use
  Company Number: 1000004736

PATIENT
  Age: 78 Year
  Sex: Female

DRUGS (11)
  1. BYSTOLIC [Suspect]
     Indication: HYPERTENSION
     Dosage: 10 MG (10 MG, 1 IN 1 D), ORAL
     Route: 048
     Dates: start: 200808, end: 201012
  2. CITALOPRAM [Suspect]
     Dosage: 10 MG, (10MG, 1 IN 1 D)
     Dates: start: 201207, end: 20120802
  3. DAILY MULTIVITAMIN (VITAMINS NOS) (VITAMINS NOS) [Concomitant]
  4. GINKGO BILOBA (GINKGO BILOBA) [Concomitant]
  5. CO-ENZYME Q10 (UBIDECARENONE, UBIDECARENONE) [Concomitant]
  6. GARLIC [Concomitant]
  7. TYLENOL [Concomitant]
  8. ALEVE [Concomitant]
  9. DIETARY SUPPLEMENTS (NOS) [Concomitant]
  10. ZOLPIDEM [Concomitant]
  11. MELATONIN [Concomitant]

REACTIONS (6)
  - PAIN [None]
  - Blood pressure increased [None]
  - Fatigue [None]
  - Dizziness [None]
  - Alopecia [None]
  - Asthenia [None]
